FAERS Safety Report 8773938 (Version 1)
Quarter: 2012Q4

REPORT INFORMATION
  Report Type: 
  Country: US (occurrence: US)
  Receive Date: 20120907
  Receipt Date: 20120907
  Transmission Date: 20130627
  Serious: Yes (Other)
  Sender: FDA-Public Use
  Company Number: US-PFIZER INC-2012218001

PATIENT
  Age: 59 Year
  Sex: Female

DRUGS (8)
  1. NEURONTIN [Suspect]
     Dosage: 600 mg, 2x/day
     Route: 048
  2. PREDNISONE [Concomitant]
     Dosage: 20 mg, UNK
  3. METOPROLOL TARTRATE [Concomitant]
     Dosage: 25 mg, UNK
  4. PRAVASTATIN SODIUM [Concomitant]
     Dosage: 40 mg, UNK
  5. TRAMADOL [Concomitant]
     Dosage: 50 mg, UNK
  6. SYMBICORT [Concomitant]
     Dosage: 160-4.5 MCG/ACT  Aerosol
  7. VENTOLIN HFA [Concomitant]
     Dosage: 108 (90 base) MCG/ACT Aerosol solution
  8. BACTRIM DS [Concomitant]
     Dosage: 800-160 MG

REACTIONS (3)
  - Essential hypertension [Unknown]
  - Hyperlipidaemia [Unknown]
  - Headache [Unknown]
